FAERS Safety Report 8583618 (Version 2)
Quarter: 2012Q4

REPORT INFORMATION
  Report Type: 
  Country: IN (occurrence: IN)
  Receive Date: 20120529
  Receipt Date: 20121011
  Transmission Date: 20130627
  Serious: Yes (Life-Threatening, Hospitalization)
  Sender: FDA-Public Use
  Company Number: PHHO2012IN008018

PATIENT
  Age: 53 Year
  Sex: Male
  Weight: 57 kg

DRUGS (6)
  1. IMATINIB [Suspect]
     Indication: CHRONIC MYELOID LEUKAEMIA
     Dosage: 600 mg, QD
     Route: 048
     Dates: start: 20090702, end: 20120125
  2. IMATINIB [Suspect]
     Dosage: 600 mg, QD
     Route: 048
     Dates: start: 201203, end: 20120420
  3. IMATINIB [Suspect]
     Dosage: 600 mg, QD
     Route: 048
     Dates: start: 20120726
  4. DEXAMETHASONE [Concomitant]
     Indication: DYSPNOEA
     Dates: start: 20120112, end: 20120112
  5. RANITIDINE [Concomitant]
     Indication: DYSPNOEA
     Dates: start: 20120112, end: 20120114
  6. DERIPHYLLIN [Concomitant]
     Indication: DYSPNOEA
     Route: 048
     Dates: start: 20120112, end: 20120114

REACTIONS (1)
  - Atrioventricular block complete [Recovered/Resolved]
